FAERS Safety Report 8838336 (Version 2)
Quarter: 2012Q4

REPORT INFORMATION
  Report Type: 
  Country: US (occurrence: US)
  Receive Date: 20121012
  Receipt Date: 20121121
  Transmission Date: 20130627
  Serious: No
  Sender: FDA-Public Use
  Company Number: US-PFIZER INC-2012250277

PATIENT
  Age: 64 Year
  Sex: Male
  Weight: 87 kg

DRUGS (1)
  1. TORISEL [Suspect]
     Indication: KIDNEY CANCER
     Dosage: UNK
     Dates: start: 2012

REACTIONS (2)
  - Oedema peripheral [Not Recovered/Not Resolved]
  - Pain in extremity [Unknown]
